FAERS Safety Report 23745652 (Version 4)
Quarter: 2024Q4

REPORT INFORMATION
  Report Type: Report from Study
  Country: US (occurrence: US)
  Receive Date: 20240416
  Receipt Date: 20241002
  Transmission Date: 20250114
  Serious: Yes (Other)
  Sender: TAKEDA
  Company Number: US-TAKEDA-2024TUS007083

PATIENT
  Age: 53 Year
  Sex: Female

DRUGS (4)
  1. FRUQUINTINIB [Suspect]
     Active Substance: FRUQUINTINIB
     Indication: Colon cancer
     Dosage: 5 MILLIGRAM
     Route: 048
     Dates: start: 20231215
  2. FRUQUINTINIB [Suspect]
     Active Substance: FRUQUINTINIB
     Dosage: 5 MILLIGRAM
     Route: 048
  3. FRUQUINTINIB [Suspect]
     Active Substance: FRUQUINTINIB
     Dosage: 4 MILLIGRAM
     Route: 048
  4. FRUQUINTINIB [Suspect]
     Active Substance: FRUQUINTINIB
     Dosage: 4 MILLIGRAM
     Route: 048
     Dates: start: 20240112

REACTIONS (22)
  - Renal impairment [Unknown]
  - Haematochezia [Recovered/Resolved]
  - Acute kidney injury [Not Recovered/Not Resolved]
  - Colon cancer [Unknown]
  - Hypoaesthesia oral [Unknown]
  - Renal mass [Unknown]
  - Myalgia [Not Recovered/Not Resolved]
  - Nausea [Unknown]
  - Pollakiuria [Unknown]
  - Glomerular filtration rate decreased [Unknown]
  - Infrequent bowel movements [Unknown]
  - Dizziness [Not Recovered/Not Resolved]
  - Hypersomnia [Unknown]
  - Ageusia [Not Recovered/Not Resolved]
  - Diarrhoea [Not Recovered/Not Resolved]
  - Back pain [Not Recovered/Not Resolved]
  - Blood urea nitrogen/creatinine ratio increased [Unknown]
  - Fatigue [Not Recovered/Not Resolved]
  - Weight decreased [Unknown]
  - Dysphonia [Unknown]
  - Stomatitis [Not Recovered/Not Resolved]
  - Decreased appetite [Not Recovered/Not Resolved]

NARRATIVE: CASE EVENT DATE: 20240219
